FAERS Safety Report 21903012 (Version 1)
Quarter: 2023Q1

REPORT INFORMATION
  Report Type: Other
  Country: DE (occurrence: DE)
  Receive Date: 20230124
  Receipt Date: 20230124
  Transmission Date: 20230418
  Serious: Yes (Other)
  Sender: FDA-Public Use
  Company Number: DE-CELLTRION INC.-2023DE001082

PATIENT

DRUGS (6)
  1. RITUXIMAB [Suspect]
     Active Substance: RITUXIMAB
     Indication: Waldenstrom^s macroglobulinaemia
     Dosage: FIRST LINE WITH BENDAMUSTINE, 6 CYCLES
     Dates: start: 2013
  2. BENDAMUSTINE [Suspect]
     Active Substance: BENDAMUSTINE
     Indication: Waldenstrom^s macroglobulinaemia
     Dosage: FIRST LINE WITH RITUXIMAB, 6 CYCLES
     Dates: start: 2013
  3. BENDAMUSTINE [Suspect]
     Active Substance: BENDAMUSTINE
     Dosage: SECOND LINE WITH OBINUTUZUMAB, 6 CYCLES
     Dates: start: 202102, end: 202106
  4. OBINUTUZUMAB [Suspect]
     Active Substance: OBINUTUZUMAB
     Indication: Waldenstrom^s macroglobulinaemia
     Dosage: SECOND LINE WITH BENDAMUSTINE, 6 CYCLES
     Route: 042
     Dates: start: 202102, end: 202106
  5. OBINUTUZUMAB [Suspect]
     Active Substance: OBINUTUZUMAB
     Indication: High-grade B-cell lymphoma
     Dosage: THIRD LINE WITH CHOP, 6 CYCLES
     Route: 042
     Dates: start: 202206, end: 202210
  6. CYCLOPHOSPHAMIDE\DOXORUBICIN\PREDNISONE\VINCRISTINE [Suspect]
     Active Substance: CYCLOPHOSPHAMIDE\DOXORUBICIN\PREDNISONE\VINCRISTINE
     Indication: High-grade B-cell lymphoma
     Dosage: THIRD LINE WITH OBINUTUZUMAB, 6 CYCLES
     Dates: start: 202206, end: 202210

REACTIONS (4)
  - Waldenstrom^s macroglobulinaemia recurrent [Unknown]
  - Lymphoma [Unknown]
  - Disease progression [Unknown]
  - Off label use [Unknown]
